FAERS Safety Report 4690307-5 (Version None)
Quarter: 2005Q2

REPORT INFORMATION
  Report Type: 
  Country: None (occurrence: None)
  Receive Date: 20050615
  Receipt Date: 20050606
  Transmission Date: 20051028
  Serious: Yes (Disabling)
  Sender: FDA-Public Use
  Company Number: NL-GLAXOSMITHKLINE-B0384200A

PATIENT
  Age: 86 Year
  Sex: Male

DRUGS (2)
  1. FLUTICASONE PROPIONATE [Suspect]
     Indication: DRUG USE FOR UNKNOWN INDICATION
     Route: 055
  2. SALMETEROL XINAFOATE [Suspect]
     Indication: DRUG USE FOR UNKNOWN INDICATION
     Dosage: 50MCG UNKNOWN
     Route: 055

REACTIONS (3)
  - BLINDNESS UNILATERAL [None]
  - MACULAR DEGENERATION [None]
  - VISUAL ACUITY REDUCED [None]
